FAERS Safety Report 24018694 (Version 1)
Quarter: 2024Q2

REPORT INFORMATION
  Report Type: Spontaneous
  Country: US (occurrence: US)
  Receive Date: 20240627
  Receipt Date: 20240627
  Transmission Date: 20240716
  Serious: Yes (Death, Hospitalization)
  Sender: FDA-Public Use
  Company Number: US-STRIDES ARCOLAB LIMITED-2024SP007480

PATIENT
  Age: 60 Year
  Sex: Female

DRUGS (9)
  1. PHENOBARBITAL [Suspect]
     Active Substance: PHENOBARBITAL
     Indication: New onset refractory status epilepticus
     Dosage: UNK
     Route: 065
  2. LACOSAMIDE [Suspect]
     Active Substance: LACOSAMIDE
     Indication: New onset refractory status epilepticus
     Dosage: UNK
     Route: 065
  3. CLOBAZAM [Suspect]
     Active Substance: CLOBAZAM
     Indication: New onset refractory status epilepticus
     Dosage: UNK
     Route: 065
  4. CENOBAMATE [Suspect]
     Active Substance: CENOBAMATE
     Indication: New onset refractory status epilepticus
     Dosage: UNK
     Route: 065
  5. PROPOFOL [Suspect]
     Active Substance: PROPOFOL
     Indication: New onset refractory status epilepticus
     Dosage: UNK
     Route: 065
  6. MIDAZOLAM [Suspect]
     Active Substance: MIDAZOLAM
     Indication: New onset refractory status epilepticus
     Dosage: UNK
     Route: 065
  7. VALPROIC ACID [Suspect]
     Active Substance: VALPROIC ACID
     Indication: New onset refractory status epilepticus
     Dosage: UNK
     Route: 065
  8. FOSPHENYTOIN [Suspect]
     Active Substance: FOSPHENYTOIN
     Indication: New onset refractory status epilepticus
     Dosage: UNK
     Route: 065
  9. BRIVARACETAM [Suspect]
     Active Substance: BRIVARACETAM
     Indication: New onset refractory status epilepticus
     Dosage: UNK
     Route: 065

REACTIONS (2)
  - Drug ineffective [Fatal]
  - Condition aggravated [Fatal]
